FAERS Safety Report 10605534 (Version 1)
Quarter: 2014Q4

REPORT INFORMATION
  Report Type: Spontaneous
  Country: CA (occurrence: CA)
  Receive Date: 20141125
  Receipt Date: 20141125
  Transmission Date: 20150529
  Serious: Yes (Other)
  Sender: FDA-Public Use
  Company Number: CA-ROCHE-1495784

PATIENT
  Age: 67 Year
  Sex: Female
  Weight: 52.21 kg

DRUGS (9)
  1. ACETAMINOPHEN. [Concomitant]
     Active Substance: ACETAMINOPHEN
  2. METHYLPREDNISOLONE. [Concomitant]
     Active Substance: METHYLPREDNISOLONE
  3. OMEGA-3 ACIDS [Concomitant]
     Active Substance: OMEGA-3 FATTY ACIDS
  4. RITUXAN [Suspect]
     Active Substance: RITUXIMAB
     Indication: PRODUCT USED FOR UNKNOWN INDICATION
     Route: 040
  5. FOLIC ACID. [Concomitant]
     Active Substance: FOLIC ACID
  6. SYNTHROID [Concomitant]
     Active Substance: LEVOTHYROXINE SODIUM
  7. ZOVIRAX [Concomitant]
     Active Substance: ACYCLOVIR
  8. METHOTREXATE [Concomitant]
     Active Substance: METHOTREXATE
  9. TYLENOL ARTHRITIS PAIN [Concomitant]
     Active Substance: ACETAMINOPHEN
     Indication: PAIN
     Route: 065

REACTIONS (3)
  - Nasal congestion [Recovered/Resolved]
  - Cough [Recovered/Resolved]
  - Hypotension [Recovered/Resolved]
